FAERS Safety Report 26155548 (Version 1)
Quarter: 2025Q4

REPORT INFORMATION
  Report Type: Spontaneous
  Country: EU (occurrence: EU)
  Receive Date: 20251215
  Receipt Date: 20251215
  Transmission Date: 20260118
  Serious: No
  Sender: ALKEM
  Company Number: EU-ALKEM LABORATORIES LIMITED-FR-ALKEM-2025-11594

PATIENT

DRUGS (1)
  1. TACROLIMUS [Suspect]
     Active Substance: TACROLIMUS
     Indication: Vitiligo
     Dosage: 0.1 PERCENT, BID (OINTMENT)
     Route: 061

REACTIONS (2)
  - Skin hyperpigmentation [Unknown]
  - Off label use [Unknown]
